FAERS Safety Report 23672940 (Version 1)
Quarter: 2024Q1

REPORT INFORMATION
  Report Type: Spontaneous
  Country: US (occurrence: US)
  Receive Date: 20240326
  Receipt Date: 20240326
  Transmission Date: 20240410
  Serious: Yes (Hospitalization, Other)
  Sender: FDA-Public Use
  Company Number: US-MLMSERVICE-20231103-4642584-1

PATIENT
  Age: 73 Year
  Sex: Male

DRUGS (2)
  1. HYDROCORTISONE [Suspect]
     Active Substance: HYDROCORTISONE
     Indication: Addison^s disease
     Dosage: UNK
     Route: 065
  2. CEFAZOLIN [Concomitant]
     Active Substance: CEFAZOLIN
     Indication: Antibiotic therapy
     Dosage: 2 GRAM
     Route: 065

REACTIONS (5)
  - Infection reactivation [Recovering/Resolving]
  - Histoplasmosis [Recovering/Resolving]
  - Bone disorder [Recovering/Resolving]
  - Comminuted fracture [Recovering/Resolving]
  - Off label use [Unknown]
